FAERS Safety Report 13008802 (Version 2)
Quarter: 2017Q1

REPORT INFORMATION
  Report Type: Report from Study
  Country: LB (occurrence: LB)
  Receive Date: 20161208
  Receipt Date: 20170103
  Transmission Date: 20170428
  Serious: Yes (Hospitalization, Other)
  Sender: FDA-Public Use
  Company Number: PHHY2016LB111395

PATIENT
  Sex: Male

DRUGS (1)
  1. GLIVEC [Suspect]
     Active Substance: IMATINIB MESYLATE
     Indication: PRODUCT USED FOR UNKNOWN INDICATION
     Dosage: 400 MG, QD
     Route: 048
     Dates: start: 20160803

REACTIONS (12)
  - Anaemia [Recovered/Resolved]
  - Immune system disorder [Not Recovered/Not Resolved]
  - Pyrexia [Recovered/Resolved]
  - Oedema peripheral [Recovering/Resolving]
  - Thrombocytopenia [Recovered/Resolved]
  - Nausea [Recovered/Resolved]
  - Leukopenia [Recovered/Resolved]
  - Central nervous system infection [Recovered/Resolved]
  - Paraesthesia [Recovering/Resolving]
  - Depression [Not Recovered/Not Resolved]
  - Blood potassium increased [Not Recovered/Not Resolved]
  - Fatigue [Not Recovered/Not Resolved]
